FAERS Safety Report 6209729-6 (Version None)
Quarter: 2009Q2

REPORT INFORMATION
  Report Type: 
  Country: None (occurrence: None)
  Receive Date: 20090601
  Receipt Date: 20090526
  Transmission Date: 20091009
  Serious: Yes (Hospitalization)
  Sender: FDA-Public Use
  Company Number: AU-JNJFOC-20090506521

PATIENT
  Sex: Female
  Weight: 65.5 kg

DRUGS (22)
  1. DURAGESIC-100 [Suspect]
     Indication: PAIN
     Route: 062
  2. PACLITAXEL [Suspect]
     Indication: NON-SMALL CELL LUNG CANCER
     Route: 042
  3. CARBOPLATIN [Suspect]
     Indication: NON-SMALL CELL LUNG CANCER
     Route: 042
  4. DEXAMETHASONE 4MG TAB [Concomitant]
     Indication: NAUSEA
     Dosage: 2-4 MG
     Route: 065
  5. TARCEVA [Concomitant]
     Indication: LUNG NEOPLASM MALIGNANT
     Route: 065
  6. LIPITOR [Concomitant]
     Indication: HYPERCHOLESTEROLAEMIA
     Route: 065
  7. FLECAINIDE ACETATE [Concomitant]
     Indication: WOLFF-PARKINSON-WHITE SYNDROME
     Route: 065
  8. KARVEA [Concomitant]
     Indication: HYPERTENSION
     Route: 065
  9. CHLORVESCENT [Concomitant]
     Route: 065
  10. SLOW-K [Concomitant]
     Route: 065
  11. NULYTELY [Concomitant]
     Route: 065
  12. PARACETAMOL [Concomitant]
     Indication: PAIN
     Dosage: AS NEEDED
     Route: 065
  13. METOCLOPRAMIDE HYDROCHLORIDE [Concomitant]
     Indication: NAUSEA
     Route: 065
  14. LOPERAMIDE HCL [Concomitant]
     Indication: DIARRHOEA
     Route: 065
  15. OXYCODONE [Concomitant]
     Dosage: AS NEEDED
     Route: 065
  16. OXYCODONE [Concomitant]
     Indication: PAIN
     Route: 065
  17. PROCHLORPERAZINE [Concomitant]
     Indication: NAUSEA
     Route: 065
  18. ZOFRAN [Concomitant]
     Indication: NAUSEA
     Route: 065
  19. MIDAZOLAM HCL [Concomitant]
     Indication: DELIRIUM
     Dosage: 1 TO 5 MG AS NEEDED
     Route: 065
  20. CEFEPIME [Concomitant]
     Route: 065
  21. GENTAMICIN [Concomitant]
     Route: 065
  22. MORPHINE [Concomitant]
     Route: 065

REACTIONS (2)
  - DELIRIUM [None]
  - HALLUCINATION [None]
